FAERS Safety Report 6173480-1 (Version None)
Quarter: 2009Q2

REPORT INFORMATION
  Report Type: 
  Country: None (occurrence: None)
  Receive Date: 20090430
  Receipt Date: 20090421
  Transmission Date: 20091009
  Serious: Yes (Hospitalization)
  Sender: FDA-Public Use
  Company Number: A0779418A

PATIENT
  Age: 53 Year
  Sex: Male

DRUGS (2)
  1. LAMICTAL [Suspect]
     Indication: BIPOLAR DISORDER
     Dosage: 150MG PER DAY
     Route: 048
     Dates: start: 20070101
  2. LITHIUM CARBONATE [Concomitant]

REACTIONS (10)
  - ADVERSE DRUG REACTION [None]
  - COMA [None]
  - CORNEAL ABRASION [None]
  - DEPRESSION [None]
  - DYSARTHRIA [None]
  - FATIGUE [None]
  - GASTROOESOPHAGEAL REFLUX DISEASE [None]
  - PYREXIA [None]
  - RASH [None]
  - TERMINAL STATE [None]
